FAERS Safety Report 10906984 (Version 1)
Quarter: 2015Q1

REPORT INFORMATION
  Report Type: Spontaneous
  Country: US (occurrence: None)
  Receive Date: 20150309
  Receipt Date: 20150309
  Transmission Date: 20150721
  Serious: No
  Sender: FDA-Public Use
  Company Number: None

PATIENT
  Sex: Female
  Weight: 57.61 kg

DRUGS (11)
  1. FISH OIL [Concomitant]
     Active Substance: FISH OIL
  2. VITAMIN C [Concomitant]
     Active Substance: ASCORBIC ACID
  3. DESONATE [Suspect]
     Active Substance: DESONIDE
     Indication: ECZEMA
     Dosage: APPLIED TO A SURFACE, USUALLY THE SKIN
     Route: 061
  4. VANOS [Suspect]
     Active Substance: FLUOCINONIDE
     Indication: ECZEMA
     Dosage: APPLIED TO A SURFACE, USUALLY THE SKIN
     Route: 061
  5. VYVANSE [Concomitant]
     Active Substance: LISDEXAMFETAMINE DIMESYLATE
  6. VITAMIN B COMPLEX [Concomitant]
     Active Substance: CYANOCOBALAMIN\DEXPANTHENOL\NIACINAMIDE\PYRIDOXINE HYDROCHLORIDE\RIBOFLAVIN 5^-PHOSPHATE SODIUM\THIAMINE HYDROCHLORIDE\VITAMIN B COMPLEX
  7. BIOTIN [Concomitant]
     Active Substance: BIOTIN
  8. OMEGA 3 [Concomitant]
     Active Substance: OMEGA-3 FATTY ACIDS
  9. CALCIUM [Concomitant]
     Active Substance: CALCIUM
  10. TURMERIC [Concomitant]
     Active Substance: TURMERIC
  11. VITAMIN E [Concomitant]
     Active Substance: .ALPHA.-TOCOPHEROL

REACTIONS (12)
  - Nervous system disorder [None]
  - Discomfort [None]
  - Burning sensation [None]
  - Skin burning sensation [None]
  - Nerve injury [None]
  - Drug dependence [None]
  - Skin injury [None]
  - Skin fragility [None]
  - Drug ineffective [None]
  - Endocrine disorder [None]
  - Eye disorder [None]
  - Adrenal disorder [None]
